FAERS Safety Report 12631420 (Version 2)
Quarter: 2016Q3

REPORT INFORMATION
  Report Type: Spontaneous
  Country: US (occurrence: US)
  Receive Date: 20160808
  Receipt Date: 20160808
  Transmission Date: 20161109
  Serious: No
  Sender: FDA-Public Use
  Company Number: US-BEH-2015053820

PATIENT
  Sex: Female
  Weight: 66 kg

DRUGS (20)
  1. LMX [Concomitant]
     Active Substance: LIDOCAINE
  2. PROTONIX [Concomitant]
     Active Substance: PANTOPRAZOLE SODIUM
  3. DIPHENHYDRAMINE. [Concomitant]
     Active Substance: DIPHENHYDRAMINE
     Indication: ANAPHYLACTIC REACTION
  4. EPIPEN [Concomitant]
     Active Substance: EPINEPHRINE
     Indication: ANAPHYLACTIC REACTION
  5. FISH OIL [Concomitant]
     Active Substance: FISH OIL
  6. ALKA-SELTZER [Concomitant]
     Active Substance: ANHYDROUS CITRIC ACID\ASPIRIN\SODIUM BICARBONATE
  7. SYMBICORT [Concomitant]
     Active Substance: BUDESONIDE\FORMOTEROL FUMARATE DIHYDRATE
  8. LIDOCAINE. [Concomitant]
     Active Substance: LIDOCAINE
  9. LUMIGAN [Concomitant]
     Active Substance: BIMATOPROST
  10. GAMMAGARD [Concomitant]
     Active Substance: HUMAN IMMUNOGLOBULIN G
  11. LIDOCAINE/PRILOCAINE [Concomitant]
     Active Substance: LIDOCAINE\PRILOCAINE
  12. RESTASIS [Concomitant]
     Active Substance: CYCLOSPORINE
  13. ZETIA [Concomitant]
     Active Substance: EZETIMIBE
  14. BIOTIN [Concomitant]
     Active Substance: BIOTIN
  15. VITAMIN D3 [Concomitant]
     Active Substance: CHOLECALCIFEROL
  16. FLONASE [Concomitant]
     Active Substance: FLUTICASONE PROPIONATE
  17. ENZYMES [Concomitant]
  18. METAXALONE. [Concomitant]
     Active Substance: METAXALONE
  19. HIZENTRA [Suspect]
     Active Substance: HUMAN IMMUNOGLOBULIN G
     Indication: IMMUNODEFICIENCY COMMON VARIABLE
     Route: 058
  20. PRIMIDONE. [Concomitant]
     Active Substance: PRIMIDONE

REACTIONS (1)
  - Pruritus [Unknown]
